FAERS Safety Report 10593723 (Version 1)
Quarter: 2014Q4

REPORT INFORMATION
  Report Type: Spontaneous
  Country: US (occurrence: US)
  Receive Date: 20141119
  Receipt Date: 20141119
  Transmission Date: 20150529
  Serious: Yes (Other)
  Sender: FDA-Public Use
  Company Number: US-BAYER-2014-169377

PATIENT
  Age: 89 Year
  Sex: Female
  Weight: 54.42 kg

DRUGS (2)
  1. BAYER CHEWABLE LOW DOSE ASPIRIN ORANGE FLAVORED [Suspect]
     Active Substance: ASPIRIN
     Indication: ANTICOAGULANT THERAPY
     Dosage: 81 MG, QD
     Route: 048
     Dates: start: 201407
  2. BAYER LOW DOSE [Suspect]
     Active Substance: ASPIRIN
     Indication: ANTICOAGULANT THERAPY
     Dosage: 81 MG, QD
     Route: 048
     Dates: start: 2009, end: 201407

REACTIONS (6)
  - Off label use [None]
  - Pollakiuria [Recovered/Resolved]
  - Foreign body [Recovered/Resolved]
  - Off label use [None]
  - Chest pain [Recovered/Resolved]
  - Nausea [Recovered/Resolved]

NARRATIVE: CASE EVENT DATE: 2009
